FAERS Safety Report 8240521-7 (Version None)
Quarter: 2012Q1

REPORT INFORMATION
  Report Type: 
  Country: None (occurrence: None)
  Receive Date: 20120328
  Receipt Date: 20120315
  Transmission Date: 20120608
  Serious: Yes (Other)
  Sender: FDA-Public Use
  Company Number: CA-ROCHE-1049784

PATIENT
  Sex: Female
  Weight: 77.18 kg

DRUGS (6)
  1. DIPHENHYDRAMINE HCL [Concomitant]
     Route: 048
     Dates: start: 20120223, end: 20120223
  2. METHYLPREDNISOLONE [Concomitant]
     Route: 042
     Dates: start: 20120223, end: 20120223
  3. ACETAMINOPHEN [Concomitant]
     Route: 048
     Dates: start: 20120223, end: 20120223
  4. METHOTREXATE [Concomitant]
  5. DOCUSATE SODIUM [Concomitant]
     Indication: WEIGHT DECREASED
  6. MABTHERA [Suspect]
     Indication: RHEUMATOID ARTHRITIS
     Dosage: ON DAY 1 AND DAY 15
     Route: 042
     Dates: start: 20081201, end: 20120223

REACTIONS (4)
  - MENORRHAGIA [None]
  - VOMITING [None]
  - HEADACHE [None]
  - NAUSEA [None]
